FAERS Safety Report 8911535 (Version 1)
Quarter: 2012Q4

REPORT INFORMATION
  Report Type: 
  Country: SE (occurrence: SE)
  Receive Date: 20121115
  Receipt Date: 20121115
  Transmission Date: 20130627
  Serious: Yes (Other)
  Sender: FDA-Public Use
  Company Number: SE-ELI_LILLY_AND_COMPANY-SE201211002460

PATIENT
  Sex: Female

DRUGS (1)
  1. ZYPREXA [Suspect]
     Indication: ASPERGER^S DISORDER
     Dosage: 1 DF, unknown
     Dates: end: 2010

REACTIONS (6)
  - Apnoea [Unknown]
  - Abscess neck [Unknown]
  - Formication [Unknown]
  - Weight increased [Unknown]
  - Fatigue [Unknown]
  - Off label use [Unknown]
